FAERS Safety Report 9708253 (Version 1)
Quarter: 2013Q4

REPORT INFORMATION
  Report Type: Report from Study
  Country: US (occurrence: US)
  Receive Date: 20131125
  Receipt Date: 20131125
  Transmission Date: 20140711
  Serious: Yes (Hospitalization)
  Sender: FDA-Public Use
  Company Number: US-ACTELION-A-US2013-91459

PATIENT
  Age: 39 Year
  Sex: Female

DRUGS (2)
  1. VELETRI [Suspect]
     Indication: PULMONARY ARTERIAL HYPERTENSION
     Dosage: 19 NG/KG, PRN
     Route: 042
     Dates: start: 20110429
  2. COUMADIN [Concomitant]

REACTIONS (1)
  - Cardiac operation [Unknown]
